FAERS Safety Report 6098721-0 (Version None)
Quarter: 2009Q1

REPORT INFORMATION
  Report Type: 
  Country: None (occurrence: None)
  Receive Date: 20090302
  Receipt Date: 20090219
  Transmission Date: 20090719
  Serious: Yes (Hospitalization, Disabling, Other)
  Sender: FDA-Public Use
  Company Number: DE-AMGEN-UK316767

PATIENT
  Sex: Female
  Weight: 48 kg

DRUGS (5)
  1. NEULASTA [Suspect]
     Indication: CHEMOTHERAPY
     Route: 058
     Dates: start: 20080620
  2. FLUOROURACIL [Concomitant]
     Route: 042
     Dates: start: 20080717
  3. EPIRUBICIN [Concomitant]
     Route: 042
     Dates: start: 20080717
  4. CYCLOPHOSPHAMIDE [Concomitant]
     Route: 042
     Dates: start: 20080717
  5. ASCORBIC ACID [Concomitant]
     Route: 042
     Dates: start: 20080721

REACTIONS (2)
  - CEREBROVASCULAR ACCIDENT [None]
  - WHITE BLOOD CELL COUNT INCREASED [None]
